FAERS Safety Report 24292585 (Version 1)
Quarter: 2024Q3

REPORT INFORMATION
  Report Type: Spontaneous
  Country: US (occurrence: None)
  Receive Date: 20240906
  Receipt Date: 20240906
  Transmission Date: 20241017
  Serious: Yes (Other)
  Sender: Public
  Company Number: None

PATIENT
  Age: 53 Year
  Sex: Female
  Weight: 127.8 kg

DRUGS (25)
  1. HYDROXYCHLOROQUINE [Suspect]
     Active Substance: HYDROXYCHLOROQUINE
     Indication: Rheumatoid arthritis
     Dosage: 1 TABLET DAILY ORAL
     Route: 048
     Dates: start: 20240320, end: 20240403
  2. MOBIC [Concomitant]
     Active Substance: MELOXICAM
  3. COREG [Concomitant]
     Active Substance: CARVEDILOL
  4. Aldactone [Concomitant]
  5. VITAMIN D2 [Concomitant]
     Active Substance: ERGOCALCIFEROL
  6. ACIPHEX [Concomitant]
  7. ARAVA [Concomitant]
     Active Substance: LEFLUNOMIDE
  8. LEXAPRO [Concomitant]
     Active Substance: ESCITALOPRAM OXALATE
  9. HUMIRA [Concomitant]
     Active Substance: ADALIMUMAB
  10. AMBIEN [Concomitant]
  11. XANAX [Concomitant]
     Active Substance: ALPRAZOLAM
  12. REQUIP [Concomitant]
  13. LIOTHYRONINE [Concomitant]
  14. CYMBALTA [Concomitant]
     Active Substance: DULOXETINE HYDROCHLORIDE
  15. Zofran [Concomitant]
  16. VITAMIN D3 [Concomitant]
  17. MAGNESIUM [Concomitant]
     Active Substance: MAGNESIUM
  18. FERROUS SULFATE [Concomitant]
     Active Substance: FERROUS SULFATE
  19. Ocuvite Hair Skin + Nail Extra Strength [Concomitant]
  20. CALCIUM CARBONATE [Concomitant]
     Active Substance: CALCIUM CARBONATE
  21. Tylenol Rapid Release [Concomitant]
  22. TUMS [Concomitant]
     Active Substance: CALCIUM CARBONATE
  23. CHONDROITIN SULFATE (BOVINE)\GLUCOSAMINE HYDROCHLORIDE [Concomitant]
     Active Substance: CHONDROITIN SULFATE (BOVINE)\GLUCOSAMINE HYDROCHLORIDE
  24. Tumeric [Concomitant]
  25. Prebiotic + Probiotic [Concomitant]

REACTIONS (2)
  - Rash pruritic [None]
  - Blister [None]

NARRATIVE: CASE EVENT DATE: 20240320
